FAERS Safety Report 20802146 (Version 1)
Quarter: 2022Q2

REPORT INFORMATION
  Report Type: Other
  Country: None (occurrence: US)
  Receive Date: 20220509
  Receipt Date: 20220509
  Transmission Date: 20220721
  Serious: Yes (Hospitalization, Other)
  Sender: FDA-Public Use
  Company Number: US-Tenshi Kaizen Private Limited-2128583

PATIENT
  Weight: 90.10 kg

DRUGS (5)
  1. LORATADINE [Suspect]
     Active Substance: LORATADINE
     Indication: Intentional overdose
     Route: 065
  2. MELATONIN [Suspect]
     Active Substance: MELATONIN
     Route: 048
  3. GUANFACINE [Suspect]
     Active Substance: GUANFACINE
     Route: 048
  4. CITALOPRAM [Concomitant]
     Active Substance: CITALOPRAM HYDROBROMIDE
     Route: 065
  5. BUPROPION [Concomitant]
     Active Substance: BUPROPION
     Route: 065

REACTIONS (14)
  - Hypertension [Recovering/Resolving]
  - Dizziness [Recovered/Resolved]
  - Nausea [Recovering/Resolving]
  - Hyperhidrosis [Recovering/Resolving]
  - Headache [Recovering/Resolving]
  - Diplopia [Recovering/Resolving]
  - Dysarthria [Recovering/Resolving]
  - Sinus bradycardia [Recovering/Resolving]
  - Syncope [Recovered/Resolved]
  - Lethargy [Recovering/Resolving]
  - Hypotension [Recovering/Resolving]
  - Somnolence [Recovering/Resolving]
  - Somnolence [Recovering/Resolving]
  - Intentional overdose [Unknown]
